FAERS Safety Report 4623088-1 (Version None)
Quarter: 2005Q1

REPORT INFORMATION
  Report Type: 
  Country: None (occurrence: None)
  Receive Date: 20050328
  Receipt Date: 20050328
  Transmission Date: 20050727
  Serious: Yes (Other)
  Sender: FDA-Public Use
  Company Number: None

PATIENT
  Age: 26 Year
  Sex: Female
  Weight: 81.6475 kg

DRUGS (2)
  1. ZOLOFT [Suspect]
     Indication: ANXIETY
     Dosage: 100 MG
  2. ZOLOFT [Suspect]
     Indication: DEPRESSION
     Dosage: 100 MG

REACTIONS (4)
  - AMENORRHOEA [None]
  - DEPRESSION [None]
  - FEELING ABNORMAL [None]
  - MENSTRUATION IRREGULAR [None]
